FAERS Safety Report 5572040-0 (Version None)
Quarter: 2007Q4

REPORT INFORMATION
  Report Type: 
  Country: None (occurrence: None)
  Receive Date: 20071221
  Receipt Date: 20071213
  Transmission Date: 20080405
  Serious: Yes (Other)
  Sender: FDA-Public Use
  Company Number: US-PFIZER INC-2007061961

PATIENT
  Sex: Female
  Weight: 108.18 kg

DRUGS (17)
  1. TIKOSYN [Suspect]
     Indication: ATRIAL FIBRILLATION
  2. CALCIUM [Concomitant]
  3. VITAMIN D [Concomitant]
  4. ADVAIR DISKUS 100/50 [Concomitant]
  5. ACTOS [Concomitant]
     Dosage: DAILY DOSE:45MG-FREQ:QD
     Route: 048
  6. AVAPRO [Concomitant]
     Dosage: DAILY DOSE:300MG-FREQ:QD
     Route: 048
  7. FERROUS SULFATE TAB [Concomitant]
     Dosage: DAILY DOSE:325MG
     Route: 048
  8. ICAPS [Concomitant]
     Route: 048
  9. MELOXICAM [Concomitant]
     Dosage: DAILY DOSE:15MG
  10. PREDNISONE [Concomitant]
     Dosage: DAILY DOSE:2MG-FREQ:DAILY
  11. PREVACID [Concomitant]
     Dosage: DAILY DOSE:30MG
  12. SERTRALINE [Concomitant]
     Dosage: DAILY DOSE:100MG
  13. ZYRTEC [Concomitant]
     Dosage: DAILY DOSE:10MG
  14. CRESTOR [Concomitant]
     Dosage: DAILY DOSE:10MG
     Route: 048
  15. COUMADIN [Concomitant]
  16. FUROSEMIDE [Concomitant]
     Dosage: DAILY DOSE:20MG
     Route: 048
  17. SKELAXIN [Concomitant]
     Dosage: DAILY DOSE:800MG

REACTIONS (5)
  - ARTHRALGIA [None]
  - DYSPNOEA [None]
  - FRACTURE [None]
  - HEART RATE DECREASED [None]
  - UPPER LIMB FRACTURE [None]
